FAERS Safety Report 10196917 (Version 1)
Quarter: 2014Q2

REPORT INFORMATION
  Report Type: Spontaneous
  Country: FR (occurrence: FR)
  Receive Date: 20140527
  Receipt Date: 20140527
  Transmission Date: 20141212
  Serious: Yes (Hospitalization)
  Sender: FDA-Public Use
  Company Number: FR-INCYTE CORPORATION-2014IN001401

PATIENT
  Age: 78 Year
  Sex: Female
  Weight: 53.1 kg

DRUGS (7)
  1. JAKAVI [Suspect]
     Indication: ESSENTIAL THROMBOCYTHAEMIA
     Dosage: 20 MG, BID
     Route: 048
     Dates: start: 20130919, end: 20130924
  2. PERINDOPRIL [Suspect]
     Dosage: 8 MG, QD
     Route: 048
  3. PERINDOPRIL [Suspect]
     Dosage: 4 MG, QD
     Route: 048
     Dates: start: 20130925
  4. PERINDOPRIL [Suspect]
     Dosage: 8 MG, QD
     Route: 048
  5. AMLODIPINE [Concomitant]
     Indication: HYPERTENSION
     Dosage: 10 MG, QD
     Route: 048
  6. FUROSEMIDE [Concomitant]
     Indication: HYPERTENSION
     Dosage: 40 MG, QD
     Route: 048
  7. NEBIVOLOL [Concomitant]
     Indication: HYPERTENSION
     Dosage: 5 MG, QD
     Route: 048

REACTIONS (1)
  - Hyperkalaemia [Recovered/Resolved]
